FAERS Safety Report 7731892-6 (Version None)
Quarter: 2011Q3

REPORT INFORMATION
  Report Type: 
  Country: None (occurrence: None)
  Receive Date: 20110906
  Receipt Date: 20110830
  Transmission Date: 20111222
  Serious: Yes (Other)
  Sender: FDA-Public Use
  Company Number: JP-PFIZER INC-2011180685

PATIENT
  Age: 74 Year
  Sex: Male

DRUGS (1)
  1. VANCOMYCIN HCL [Suspect]
     Indication: SEPSIS
     Dosage: 0.5 G, 2X/DAY
     Route: 042
     Dates: start: 20110709, end: 20110715

REACTIONS (1)
  - RENAL INFARCT [None]
